FAERS Safety Report 8966723 (Version 1)
Quarter: 2012Q4

REPORT INFORMATION
  Report Type: Report from Study
  Country: CA (occurrence: CA)
  Receive Date: 20121217
  Receipt Date: 20121217
  Transmission Date: 20130627
  Serious: Yes (Hospitalization, Other)
  Sender: FDA-Public Use
  Company Number: CA-JNJFOC-20121204951

PATIENT
  Age: 24 None
  Sex: Female
  Weight: 47.63 kg

DRUGS (1)
  1. REMICADE [Suspect]
     Indication: CROHN^S DISEASE
     Route: 042

REACTIONS (3)
  - Intestinal operation [Recovering/Resolving]
  - Scar [Recovering/Resolving]
  - Crohn^s disease [Recovering/Resolving]
